FAERS Safety Report 18195379 (Version 3)
Quarter: 2020Q3

REPORT INFORMATION
  Report Type: Spontaneous
  Country: FI (occurrence: FI)
  Receive Date: 20200825
  Receipt Date: 20200909
  Transmission Date: 20201103
  Serious: Yes (Other)
  Sender: FDA-Public Use
  Company Number: FI-SA-2020SA218437

PATIENT

DRUGS (4)
  1. LANTUS [Suspect]
     Active Substance: INSULIN GLARGINE
     Indication: MALAISE
  2. TOUJEO [Suspect]
     Active Substance: INSULIN GLARGINE
     Indication: MALAISE
  3. TOUJEO [Suspect]
     Active Substance: INSULIN GLARGINE
     Indication: TYPE 2 DIABETES MELLITUS
     Dosage: 140 IU, QD
     Route: 065
     Dates: start: 201910
  4. LANTUS [Suspect]
     Active Substance: INSULIN GLARGINE
     Indication: TYPE 2 DIABETES MELLITUS
     Dosage: 90 IU, QD
     Route: 065

REACTIONS (7)
  - Malaise [Unknown]
  - Nausea [Unknown]
  - Product use issue [Unknown]
  - Product use in unapproved indication [Unknown]
  - Hypoglycaemia [Unknown]
  - Extra dose administered [Unknown]
  - Somnolence [Unknown]

NARRATIVE: CASE EVENT DATE: 202008
